FAERS Safety Report 19667259 (Version 1)
Quarter: 2021Q3

REPORT INFORMATION
  Report Type: Report from Study
  Country: US (occurrence: US)
  Receive Date: 20210806
  Receipt Date: 20210806
  Transmission Date: 20211014
  Serious: Yes (Disabling, Other)
  Sender: FDA-Public Use
  Company Number: US-ASTRAZENECA-2021A657058

PATIENT
  Age: 70 Year
  Sex: Male
  Weight: 113.4 kg

DRUGS (1)
  1. LYNPARZA [Suspect]
     Active Substance: OLAPARIB
     Indication: PROSTATE CANCER
     Route: 048
     Dates: start: 20210426

REACTIONS (5)
  - Abdominal discomfort [Unknown]
  - Back pain [Unknown]
  - Retching [Unknown]
  - Pain in extremity [Unknown]
  - Arthralgia [Unknown]
